FAERS Safety Report 13693701 (Version 1)
Quarter: 2017Q2

REPORT INFORMATION
  Report Type: Report from Study
  Country: US (occurrence: US)
  Receive Date: 20170627
  Receipt Date: 20170627
  Transmission Date: 20170830
  Serious: Yes (Hospitalization)
  Sender: FDA-Public Use
  Company Number: US-GILEAD-2017-0279029

PATIENT
  Age: 27 Year
  Sex: Female

DRUGS (3)
  1. REMODULIN [Concomitant]
     Active Substance: TREPROSTINIL
  2. AMBRISENTAN [Suspect]
     Active Substance: AMBRISENTAN
     Indication: PRODUCT USED FOR UNKNOWN INDICATION
     Dosage: 10 MG, QD
     Route: 065
  3. ADCIRCA [Concomitant]
     Active Substance: TADALAFIL

REACTIONS (7)
  - Generalised erythema [Unknown]
  - Dyspnoea [Unknown]
  - Oedema [Unknown]
  - Catheterisation cardiac [Unknown]
  - Cyanosis [Unknown]
  - Transplant evaluation [Unknown]
  - Abdominal distension [Unknown]
